FAERS Safety Report 6632642-7 (Version None)
Quarter: 2010Q1

REPORT INFORMATION
  Report Type: 
  Country: None (occurrence: None)
  Receive Date: 20100312
  Receipt Date: 20100304
  Transmission Date: 20100710
  Serious: Yes (Hospitalization)
  Sender: FDA-Public Use
  Company Number: HU-NAPPMUNDI-DEU-2010-0005898

PATIENT
  Sex: Female

DRUGS (28)
  1. BLINDED NONE [Suspect]
     Indication: ARTHRALGIA
     Dosage: 20 MG, DAILY
     Route: 048
     Dates: start: 20091217
  2. BLINDED OXY CR TAB [Suspect]
     Indication: ARTHRALGIA
     Dosage: 20 MG, DAILY
     Route: 048
     Dates: start: 20091217
  3. BLINDED OXY CR TAB 10 MG [Suspect]
     Indication: ARTHRALGIA
     Dosage: 20 MG, DAILY
     Route: 048
     Dates: start: 20091217
  4. BLINDED OXY CR TAB 20 MG [Suspect]
     Indication: ARTHRALGIA
     Dosage: 20 MG, DAILY
     Route: 048
     Dates: start: 20091217
  5. BLINDED OXY CR TAB 40 MG [Suspect]
     Indication: ARTHRALGIA
     Dosage: 20 MG, DAILY
     Route: 048
     Dates: start: 20091217
  6. BLINDED OXY CR TAB 5 MG [Suspect]
     Indication: ARTHRALGIA
     Dosage: 20 MG, DAILY
     Route: 048
     Dates: start: 20091217
  7. BLINDED OXYCODONE HCL/NALOXONE HCL CR TAB [Suspect]
     Indication: ARTHRALGIA
     Dosage: 20 MG, DAILY
     Route: 048
     Dates: start: 20091217
  8. BLINDED OXYCODONE HCL/NALOXONE HCL CR TAB 10/5MG [Suspect]
     Indication: ARTHRALGIA
     Dosage: 20 MG, DAILY
     Route: 048
     Dates: start: 20091217
  9. BLINDED OXYCODONE HCL/NALOXONE HCL CR TAB20/10MG [Suspect]
     Indication: ARTHRALGIA
     Dosage: 20 MG, DAILY
     Route: 048
     Dates: start: 20091217
  10. BLINDED OXYCODONE HCL/NALOXONE HCL CRTAB 5/2.5MG [Suspect]
     Indication: ARTHRALGIA
     Dosage: 20 MG, DAILY
     Route: 048
     Dates: start: 20091217
  11. BLINDED NONE [Suspect]
     Dosage: 50 MG, DAILY
     Route: 048
     Dates: start: 20091209, end: 20091216
  12. BLINDED OXY CR TAB [Suspect]
     Dosage: 50 MG, DAILY
     Route: 048
     Dates: start: 20091209, end: 20091216
  13. BLINDED OXY CR TAB 10 MG [Suspect]
     Dosage: 50 MG, DAILY
     Route: 048
     Dates: start: 20091209, end: 20091216
  14. BLINDED OXY CR TAB 20 MG [Suspect]
     Dosage: 50 MG, DAILY
     Route: 048
     Dates: start: 20091209, end: 20091216
  15. BLINDED OXY CR TAB 40 MG [Suspect]
     Dosage: 50 MG, DAILY
     Route: 048
     Dates: start: 20091209, end: 20091216
  16. BLINDED OXY CR TAB 5 MG [Suspect]
     Dosage: 50 MG, DAILY
     Route: 048
     Dates: start: 20091209, end: 20091216
  17. BLINDED OXYCODONE HCL/NALOXONE HCL CR TAB [Suspect]
     Dosage: 50 MG, DAILY
     Route: 048
     Dates: start: 20091209, end: 20091216
  18. BLINDED OXYCODONE HCL/NALOXONE HCL CR TAB 10/5MG [Suspect]
     Dosage: 50 MG, DAILY
     Route: 048
     Dates: start: 20091209, end: 20091216
  19. BLINDED OXYCODONE HCL/NALOXONE HCL CR TAB20/10MG [Suspect]
     Dosage: 50 MG, DAILY
     Route: 048
     Dates: start: 20091209, end: 20091216
  20. BLINDED OXYCODONE HCL/NALOXONE HCL CRTAB 5/2.5MG [Suspect]
     Dosage: 50 MG, DAILY
     Route: 048
     Dates: start: 20091209, end: 20091216
  21. TRITACE [Concomitant]
  22. TENAXUM                            /00939801/ [Concomitant]
  23. FURON                              /00032601/ [Concomitant]
  24. KALDYUM [Concomitant]
  25. ZOCOR [Concomitant]
  26. ULCUS VENTRICULI [Concomitant]
  27. FRONTIN [Concomitant]
  28. APO-FAMOTIDINE [Concomitant]

REACTIONS (1)
  - HYPERTENSION [None]
